FAERS Safety Report 8185223 (Version 3)
Quarter: 2012Q4

REPORT INFORMATION
  Report Type: 
  Country: US (occurrence: US)
  Receive Date: 20111018
  Receipt Date: 20121129
  Transmission Date: 20130627
  Serious: No
  Sender: FDA-Public Use
  Company Number: US-ASTRAZENECA-2010SE55309

PATIENT
  Age: 62 Year
  Sex: Female
  Weight: 99.8 kg

DRUGS (7)
  1. SYMBICORT [Suspect]
     Indication: CHRONIC OBSTRUCTIVE PULMONARY DISEASE
     Dosage: 320 MCG BID
     Route: 055
  2. NEXIUM [Suspect]
     Dosage: DAILY
     Route: 048
  3. NEXIUM [Suspect]
     Dosage: TWICE DAILY
     Route: 048
  4. NEXIUM [Suspect]
     Dosage: ONCE DAILY
     Route: 048
  5. CRESTOR [Concomitant]
  6. WATER PILL [Concomitant]
     Dosage: AS REQUIRED
  7. VITAMINS [Concomitant]

REACTIONS (10)
  - Chest pain [Unknown]
  - Lower respiratory tract infection [Unknown]
  - Nasal congestion [Unknown]
  - Bronchitis [Unknown]
  - Adverse event [Unknown]
  - Cough [Unknown]
  - Intentional drug misuse [Unknown]
  - Drug ineffective [Unknown]
  - Off label use [Unknown]
  - Off label use [Unknown]
